FAERS Safety Report 18406639 (Version 1)
Quarter: 2020Q4

REPORT INFORMATION
  Report Type: Report from Study
  Country: None (occurrence: US)
  Receive Date: 20201021
  Receipt Date: 20201021
  Transmission Date: 20210114
  Serious: Yes (Other)
  Sender: FDA-Public Use
  Company Number: US-ABBVIE-20K-163-3558243-00

PATIENT
  Age: 55 Year
  Sex: Female
  Weight: 118.04 kg

DRUGS (2)
  1. HUMIRA [Suspect]
     Active Substance: ADALIMUMAB
     Indication: PSORIASIS
     Route: 058
     Dates: start: 2005
  2. HUMIRA [Suspect]
     Active Substance: ADALIMUMAB
     Indication: PSORIATIC ARTHROPATHY

REACTIONS (19)
  - Osteoarthritis [Not Recovered/Not Resolved]
  - Vitamin D deficiency [Recovering/Resolving]
  - Foot fracture [Recovered/Resolved]
  - Tuberculosis [Recovered/Resolved]
  - Fall [Recovered/Resolved]
  - Limb injury [Recovered/Resolved]
  - Foot fracture [Recovered/Resolved]
  - Arthralgia [Recovered/Resolved]
  - Foot fracture [Recovered/Resolved]
  - Fall [Recovered/Resolved]
  - Tendon rupture [Recovered/Resolved]
  - Fall [Recovered/Resolved]
  - Osteomalacia [Unknown]
  - Limb injury [Recovered/Resolved]
  - Foot fracture [Recovered/Resolved]
  - Fracture delayed union [Not Recovered/Not Resolved]
  - Ankle fracture [Recovered/Resolved]
  - Foot fracture [Unknown]
  - Ankle fracture [Recovered/Resolved]

NARRATIVE: CASE EVENT DATE: 2015
